FAERS Safety Report 13940995 (Version 4)
Quarter: 2017Q4

REPORT INFORMATION
  Report Type: Spontaneous
  Country: US (occurrence: US)
  Receive Date: 20170906
  Receipt Date: 20171227
  Transmission Date: 20180320
  Serious: Yes (Death, Other)
  Sender: FDA-Public Use
  Company Number: US-PFIZER INC-2017383392

PATIENT
  Age: 56 Year
  Sex: Male
  Weight: 95.24 kg

DRUGS (1)
  1. SUTENT [Suspect]
     Active Substance: SUNITINIB MALATE
     Indication: RENAL CANCER METASTATIC
     Dosage: 50 MG, CYCLIC (D1-28 Q 42 DAYS)
     Route: 048
     Dates: start: 20170826, end: 201712

REACTIONS (12)
  - Arthropathy [Not Recovered/Not Resolved]
  - Cancer pain [Unknown]
  - Somnolence [Unknown]
  - Malaise [Unknown]
  - Decreased appetite [Unknown]
  - Arthralgia [Unknown]
  - Condition aggravated [Unknown]
  - Dyspnoea [Unknown]
  - Death [Fatal]
  - Fatigue [Unknown]
  - Insomnia [Unknown]
  - Nausea [Recovering/Resolving]

NARRATIVE: CASE EVENT DATE: 20171003
